FAERS Safety Report 7069707-4 (Version None)
Quarter: 2010Q4

REPORT INFORMATION
  Report Type: 
  Country: None (occurrence: None)
  Receive Date: 20101028
  Receipt Date: 20100506
  Transmission Date: 20110411
  Serious: No
  Sender: FDA-Public Use
  Company Number: US-WYE-H15009610

PATIENT
  Age: 36 Year
  Sex: Female
  Weight: 113.5 kg

DRUGS (2)
  1. EFFEXOR [Suspect]
     Route: 065
  2. GLEEVEC [Suspect]
     Dosage: 400 MG (FREQUENCY UNKNOWN)
     Route: 065

REACTIONS (2)
  - NAUSEA [None]
  - VOMITING [None]
